FAERS Safety Report 4552958-8 (Version None)
Quarter: 2005Q1

REPORT INFORMATION
  Report Type: 
  Country: None (occurrence: None)
  Receive Date: 20050112
  Receipt Date: 20050112
  Transmission Date: 20050727
  Serious: Yes (Other)
  Sender: FDA-Public Use
  Company Number: None

PATIENT
  Sex: Female
  Weight: 87.9978 kg

DRUGS (1)
  1. FIORICET [Suspect]
     Indication: HEADACHE
     Dosage: 1-2 PO Q 4 HRS
     Route: 048
     Dates: start: 20041001, end: 20041101

REACTIONS (2)
  - ABDOMINAL DISCOMFORT [None]
  - PHARMACEUTICAL PRODUCT COMPLAINT [None]
